FAERS Safety Report 13306405 (Version 2)
Quarter: 2017Q1

REPORT INFORMATION
  Report Type: Spontaneous
  Country: SE (occurrence: SE)
  Receive Date: 20170308
  Receipt Date: 20170315
  Transmission Date: 20170428
  Serious: Yes (Hospitalization, Other)
  Sender: FDA-Public Use
  Company Number: SE-GILEAD-2017-0260911

PATIENT
  Age: 48 Year
  Sex: Male
  Weight: 52 kg

DRUGS (3)
  1. PREZISTA [Concomitant]
     Active Substance: DARUNAVIR ETHANOLATE
  2. TRUVADA [Suspect]
     Active Substance: EMTRICITABINE\TENOFOVIR DISOPROXIL FUMARATE
     Indication: HIV INFECTION
     Dosage: 1 DF, QD
     Route: 065
     Dates: start: 2007
  3. NORVIR [Concomitant]
     Active Substance: RITONAVIR

REACTIONS (3)
  - Femoral neck fracture [Unknown]
  - Hypokalaemia [Not Recovered/Not Resolved]
  - Osteoporosis [Not Recovered/Not Resolved]

NARRATIVE: CASE EVENT DATE: 20161120
